FAERS Safety Report 11654134 (Version 1)
Quarter: 2015Q4

REPORT INFORMATION
  Report Type: Spontaneous
  Country: US (occurrence: US)
  Receive Date: 20151023
  Receipt Date: 20151023
  Transmission Date: 20160304
  Serious: Yes (Other)
  Sender: FDA-Public Use
  Company Number: US-JNJFOC-20151007153

PATIENT
  Age: 49 Year
  Sex: Female
  Weight: 45.81 kg

DRUGS (1)
  1. BENGAY ULTRA STRENGTH PAIN RELIEVING [Suspect]
     Active Substance: CAMPHOR (SYNTHETIC)\MENTHOL\METHYL SALICYLATE
     Indication: MYALGIA
     Dosage: 1/2 INCH AMOUNT
     Route: 061
     Dates: start: 20151006, end: 20151006

REACTIONS (1)
  - Anaphylactic shock [Recovered/Resolved]

NARRATIVE: CASE EVENT DATE: 20151006
